FAERS Safety Report 5738672-1 (Version None)
Quarter: 2008Q2

REPORT INFORMATION
  Report Type: 
  Country: None (occurrence: None)
  Receive Date: 20080514
  Receipt Date: 20080514
  Transmission Date: 20081010
  Serious: Yes (Hospitalization, Disabling)
  Sender: FDA-Public Use
  Company Number: None

PATIENT
  Sex: Female
  Weight: 47.8545 kg

DRUGS (6)
  1. LIPITOR [Suspect]
     Indication: BLOOD CHOLESTEROL INCREASED
     Dosage: ONCE DAILY AT BEDTIME ORAL
     Route: 048
     Dates: start: 20010801, end: 20040225
  2. LIPITOR [Suspect]
     Indication: LOW DENSITY LIPOPROTEIN INCREASED
     Dosage: ONCE DAILY AT BEDTIME ORAL
     Route: 048
     Dates: start: 20010801, end: 20040225
  3. CRESTOR [Suspect]
     Indication: BLOOD CHOLESTEROL INCREASED
     Dosage: ONCE DAILY AT BEDTIME ORAL
     Route: 048
     Dates: start: 20040225, end: 20071201
  4. CRESTOR [Suspect]
     Indication: LOW DENSITY LIPOPROTEIN INCREASED
     Dosage: ONCE DAILY AT BEDTIME ORAL
     Route: 048
     Dates: start: 20040225, end: 20071201
  5. SIMVASTATIN [Suspect]
     Indication: BLOOD CHOLESTEROL INCREASED
     Dosage: ONCE DAILY AT BEDTIME ORAL
     Route: 048
     Dates: start: 20080315
  6. SIMVASTATIN [Suspect]
     Indication: LOW DENSITY LIPOPROTEIN INCREASED
     Dosage: ONCE DAILY AT BEDTIME ORAL
     Route: 048
     Dates: start: 20080315

REACTIONS (9)
  - APHASIA [None]
  - CHEST PAIN [None]
  - CONSTIPATION [None]
  - DIZZINESS POSTURAL [None]
  - DYSPNOEA [None]
  - LUNG DISORDER [None]
  - ORAL INTAKE REDUCED [None]
  - PAIN [None]
  - RECTAL PROLAPSE [None]
